FAERS Safety Report 7510611-2 (Version None)
Quarter: 2011Q2

REPORT INFORMATION
  Report Type: 
  Country: None (occurrence: None)
  Receive Date: 20110530
  Receipt Date: 20110523
  Transmission Date: 20111010
  Serious: No
  Sender: FDA-Public Use
  Company Number: US-BIOGENIDEC-2011BI019509

PATIENT
  Sex: Female

DRUGS (2)
  1. AVONEX [Suspect]
     Indication: MULTIPLE SCLEROSIS
     Route: 030
     Dates: start: 20060127
  2. AVONEX [Suspect]
     Route: 030
     Dates: start: 20011201, end: 20040401

REACTIONS (3)
  - INJECTION SITE HAEMATOMA [None]
  - MALAISE [None]
  - INJECTION SITE HAEMORRHAGE [None]
